FAERS Safety Report 20937246 (Version 1)
Quarter: 2022Q2

REPORT INFORMATION
  Report Type: Report from Study
  Country: US (occurrence: US)
  Receive Date: 20220609
  Receipt Date: 20220609
  Transmission Date: 20220720
  Serious: Yes (Hospitalization, Other)
  Sender: FDA-Public Use
  Company Number: US-ABBVIE-22K-163-4425451-00

PATIENT
  Age: 56 Year
  Sex: Female

DRUGS (1)
  1. RINVOQ [Suspect]
     Active Substance: UPADACITINIB
     Indication: Rheumatoid arthritis
     Route: 048
     Dates: start: 2020, end: 202205

REACTIONS (8)
  - Pulmonary thrombosis [Recovering/Resolving]
  - Dyspnoea [Recovering/Resolving]
  - Pain [Recovered/Resolved]
  - Chills [Recovered/Resolved]
  - Asthenia [Recovering/Resolving]
  - Bacterial infection [Recovered/Resolved]
  - Oropharyngeal pain [Recovered/Resolved]
  - Pyrexia [Recovered/Resolved]

NARRATIVE: CASE EVENT DATE: 20220501
